FAERS Safety Report 19636864 (Version 1)
Quarter: 2021Q3

REPORT INFORMATION
  Report Type: Spontaneous
  Country: NL (occurrence: NL)
  Receive Date: 20210730
  Receipt Date: 20210730
  Transmission Date: 20211014
  Serious: Yes (Other)
  Sender: FDA-Public Use
  Company Number: NL-ACCORD-233556

PATIENT
  Sex: Female
  Weight: 100 kg

DRUGS (6)
  1. ESOMEPRAZOLE. [Concomitant]
     Active Substance: ESOMEPRAZOLE MAGNESIUM
     Dosage: TABLET MSR 40MG, GASTRO?RESISTANT TABLET, 40 MG (MILLIGRAMS)
  2. MAGNESIUM HYDROXIDE. [Concomitant]
     Active Substance: MAGNESIUM HYDROXIDE
     Dosage: CHEWABLE TABLET 724 MG, CHEWABLE TABLET, 724 MG (MILLIGRAMS)
  3. AMLODIPINE [Suspect]
     Active Substance: AMLODIPINE BESYLATE
     Indication: HYPERTENSION
     Dosage: TABLET 5 MG, 1 X PER DAY 1 PIECE
     Dates: start: 20210526, end: 20210528
  4. MEBEVERINE [Concomitant]
     Active Substance: MEBEVERINE
     Dosage: CAPSULE MGA 200 MG, MODIFIED?RELEASE CAPSULE, 200 MG (MILLIGRAMS)
  5. LOSARTAN. [Concomitant]
     Active Substance: LOSARTAN
     Dosage: TABLET FO 100MG, FILM?COATED TABLET, 100 MG (MILLIGRAMS)
  6. COLECALCIFEROL [Concomitant]
     Active Substance: CHOLECALCIFEROL
     Dosage: CAPSULE 5600 IU , CAPSULE, 5600 UNITS

REACTIONS (4)
  - Restlessness [Recovered/Resolved]
  - Dysarthria [Recovered/Resolved]
  - Chest discomfort [Recovered/Resolved]
  - Headache [Recovered/Resolved]
